FAERS Safety Report 10649901 (Version 6)
Quarter: 2016Q1

REPORT INFORMATION
  Report Type: Report from Study
  Country: JP (occurrence: JP)
  Receive Date: 20141212
  Receipt Date: 20160318
  Transmission Date: 20160525
  Serious: Yes (Death, Hospitalization)
  Sender: FDA-Public Use
  Company Number: JP-INCYTE CORPORATION-2014IN003767

PATIENT
  Age: 79 Year
  Sex: Male
  Weight: 54 kg

DRUGS (2)
  1. JAKAFI [Suspect]
     Active Substance: RUXOLITINIB
     Indication: PRIMARY MYELOFIBROSIS
     Dosage: 5 MG, BID
     Route: 048
     Dates: start: 20141003, end: 20141112
  2. HYDREA [Concomitant]
     Active Substance: HYDROXYUREA
     Dosage: UNK
     Dates: end: 20141001

REACTIONS (4)
  - Haemorrhage [Unknown]
  - Fungal infection [Fatal]
  - Pneumocystis jirovecii pneumonia [Fatal]
  - Nasal mucosal disorder [Fatal]

NARRATIVE: CASE EVENT DATE: 20141128
